FAERS Safety Report 6667535-2 (Version None)
Quarter: 2010Q2

REPORT INFORMATION
  Report Type: 
  Country: None (occurrence: None)
  Receive Date: 20100405
  Receipt Date: 20100319
  Transmission Date: 20101027
  Serious: Yes (Hospitalization)
  Sender: FDA-Public Use
  Company Number: PHHY2009JP37176

PATIENT
  Sex: Male

DRUGS (6)
  1. TASIGNA [Suspect]
     Indication: CHRONIC MYELOID LEUKAEMIA
     Dosage: 800 MG/DAY
     Route: 048
     Dates: start: 20090324, end: 20090826
  2. TASIGNA [Suspect]
     Dosage: 400 MG DAILY
     Route: 048
     Dates: start: 20090929
  3. TASIGNA [Suspect]
     Dosage: UNK
     Route: 048
  4. PARIET [Concomitant]
     Indication: GASTRIC ULCER
     Dosage: 10 MG, UNK
     Route: 048
     Dates: start: 20090324
  5. ULCERLMIN [Concomitant]
     Indication: GASTRIC ULCER
     Dosage: 3 DF, UNK
     Route: 048
     Dates: start: 20090324
  6. TANATRIL ^ALGOL^ [Concomitant]
     Indication: HYPERTENSION
     Dosage: 5 MG, UNK
     Route: 048
     Dates: start: 20090324

REACTIONS (9)
  - ASPARTATE AMINOTRANSFERASE INCREASED [None]
  - BILIRUBIN CONJUGATED INCREASED [None]
  - BLOOD ALKALINE PHOSPHATASE INCREASED [None]
  - BLOOD LACTATE DEHYDROGENASE INCREASED [None]
  - MONOCYTE PERCENTAGE INCREASED [None]
  - NEOPLASM MALIGNANT [None]
  - NEOPLASM RECURRENCE [None]
  - SQUAMOUS CELL CARCINOMA [None]
  - TUMOUR EXCISION [None]
